FAERS Safety Report 4444850-4 (Version None)
Quarter: 2004Q3

REPORT INFORMATION
  Report Type: 
  Country: None (occurrence: None)
  Receive Date: 20040907
  Receipt Date: 20040907
  Transmission Date: 20050211
  Serious: Yes (Hospitalization, Other)
  Sender: FDA-Public Use
  Company Number: None

PATIENT
  Age: 58 Year
  Sex: Female
  Weight: 141.5223 kg

DRUGS (1)
  1. VASOTEC [Suspect]
     Indication: HYPERTENSION
     Dosage: 10 MG PO
     Route: 048

REACTIONS (1)
  - BLOOD PRESSURE INCREASED [None]
